FAERS Safety Report 7151568-6 (Version None)
Quarter: 2010Q4

REPORT INFORMATION
  Report Type: 
  Country: None (occurrence: None)
  Receive Date: 20101210
  Receipt Date: 20101206
  Transmission Date: 20110411
  Serious: Yes (Hospitalization)
  Sender: FDA-Public Use
  Company Number: SE-PFIZER INC-2010164513

PATIENT
  Age: 63 Year
  Sex: Male
  Weight: 64.3 kg

DRUGS (8)
  1. SOMATROPIN [Suspect]
     Indication: HYPOPITUITARISM
     Dosage: UNK
     Dates: start: 20090731, end: 20090731
  2. LEVOTHYROXINE [Concomitant]
     Indication: BLOOD THYROID STIMULATING HORMONE
     Dosage: 0.15 MH, 1X/DAY
     Dates: start: 20071020
  3. TEGRETOL [Concomitant]
     Indication: EPILEPSY
     Dosage: 600 MG/24H, UNK
     Dates: start: 20070724
  4. TESTOSTERONE [Concomitant]
     Indication: BLOOD LUTEINISING HORMONE DECREASED
     Dosage: 250 MG, MONTHLY
     Dates: start: 19950201
  5. TESTOSTERONE [Concomitant]
     Indication: BLOOD FOLLICLE STIMULATING HORMONE DECREASED
     Dosage: 1000 MG, UNK
     Dates: start: 20051101
  6. TESTOSTERONE [Concomitant]
     Indication: HYPOGONADISM
  7. PROPAVAN [Concomitant]
     Indication: SLEEP DISORDER
     Dosage: 25 MG, AS NEEDED
     Dates: start: 19980801
  8. IMODIUM [Concomitant]
     Indication: DIARRHOEA INFECTIOUS
     Dosage: 12 MG/24H, UNK
     Dates: start: 19940601

REACTIONS (1)
  - ANAPLASTIC ASTROCYTOMA [None]
